FAERS Safety Report 15418393 (Version 1)
Quarter: 2018Q3

REPORT INFORMATION
  Report Type: Spontaneous
  Country: JP (occurrence: JP)
  Receive Date: 20180924
  Receipt Date: 20180924
  Transmission Date: 20181010
  Serious: Yes (Hospitalization)
  Sender: FDA-Public Use
  Company Number: JP-JNJFOC-20180926436

PATIENT
  Age: 38 Year

DRUGS (1)
  1. TRAMAL [Suspect]
     Active Substance: TRAMADOL
     Indication: PAIN
     Route: 065

REACTIONS (10)
  - Anaphylactic shock [Unknown]
  - Hepatic function abnormal [Unknown]
  - Dizziness [Unknown]
  - Abdominal discomfort [Unknown]
  - Blood bilirubin abnormal [Unknown]
  - Respiratory depression [Unknown]
  - Adverse drug reaction [Unknown]
  - Conduction disorder [Unknown]
  - Hypoaesthesia [Unknown]
  - Asthenia [Unknown]
